FAERS Safety Report 9184977 (Version 5)
Quarter: 2013Q2

REPORT INFORMATION
  Report Type: Spontaneous
  Country: FR (occurrence: FR)
  Receive Date: 20130325
  Receipt Date: 20130515
  Transmission Date: 20140414
  Serious: Yes (Hospitalization, Other)
  Sender: FDA-Public Use
  Company Number: FR-VERTEX PHARMACEUTICALS INC.-2013-003980

PATIENT
  Age: 70 Year
  Sex: Male
  Weight: 58.5 kg

DRUGS (8)
  1. INCIVO [Suspect]
     Indication: HEPATITIS C
     Dosage: 1125 MG, BID
     Route: 048
     Dates: start: 20130125, end: 20130402
  2. RIBAVIRIN [Suspect]
     Indication: HEPATITIS C
     Dosage: DOSAGE FORM: UNSPECIFIED
     Route: 048
     Dates: start: 20130125
  3. RIBAVIRIN [Suspect]
     Dosage: DOSAGE FORM: UNSPECIFIED
     Route: 048
     Dates: start: 20130310
  4. PEGASYS [Suspect]
     Indication: HEPATITIS C
     Dosage: DOSAGE FORM: UNSPECIFIED
     Route: 058
     Dates: start: 20130125
  5. OLMESARTAN [Concomitant]
     Indication: HYPERTENSION
     Dosage: DOSAGE FORM: UNSPECIFIED
     Route: 048
     Dates: start: 20130115, end: 20130309
  6. LEVOCETIRIZINE [Concomitant]
     Indication: PRURITUS
     Dosage: DOSAGE FORM: UNSPECIFIED
     Route: 048
     Dates: start: 20130208
  7. HYDROXYZINE [Concomitant]
     Indication: PRURITUS
     Dosage: DOSAGE FORM: UNSPECIFIED
     Route: 048
     Dates: start: 20130206
  8. ASPIRIN [Concomitant]
     Indication: CORONARY ARTERY DISEASE
     Dosage: DOSAGE FORM: UNSPECIFIED
     Route: 048
     Dates: start: 20130115

REACTIONS (5)
  - Renal failure [Recovered/Resolved]
  - Anaemia [Unknown]
  - Inappropriate schedule of drug administration [Unknown]
  - Asthenia [Unknown]
  - Decreased appetite [Unknown]
